FAERS Safety Report 18713117 (Version 5)
Quarter: 2021Q1

REPORT INFORMATION
  Report Type: Spontaneous
  Country: GR (occurrence: GR)
  Receive Date: 20210107
  Receipt Date: 20210323
  Transmission Date: 20210419
  Serious: Yes (Hospitalization)
  Sender: FDA-Public Use
  Company Number: GR-CELGENEUS-GRC-20210100374

PATIENT
  Age: 61 Year
  Sex: Male

DRUGS (19)
  1. AMLOPEN [Concomitant]
     Route: 065
     Dates: start: 20210112
  2. IVOR [Concomitant]
     Active Substance: BEMIPARIN SODIUM
     Indication: PROPHYLAXIS
     Route: 065
     Dates: start: 20210108
  3. CARFILZOMIB [Suspect]
     Active Substance: CARFILZOMIB
     Indication: PLASMA CELL MYELOMA
     Route: 041
     Dates: start: 20201229, end: 20201229
  4. INNOHEP [Concomitant]
     Active Substance: TINZAPARIN SODIUM
     Indication: PROPHYLAXIS
     Route: 065
     Dates: start: 20201222, end: 20210107
  5. CARFILZOMIB [Suspect]
     Active Substance: CARFILZOMIB
     Dosage: 45 MG/DL
     Route: 041
     Dates: start: 20210119
  6. CALCIORAL [Concomitant]
     Dosage: 500 MILLIGRAM
     Route: 065
     Dates: start: 20201231, end: 20210108
  7. ZOMETA [Concomitant]
     Active Substance: ZOLEDRONIC ACID
     Indication: PLASMA CELL MYELOMA
     Route: 065
     Dates: start: 20201222
  8. LACTATED RINGERS SOLUTION [Concomitant]
     Active Substance: CALCIUM CHLORIDE\POTASSIUM CHLORIDE\SODIUM CHLORIDE\SODIUM LACTATE
     Indication: RENAL IMPAIRMENT
     Dosage: 1000 MILLILITER
     Route: 041
     Dates: start: 20210103, end: 20210108
  9. AMLOPEN [Concomitant]
     Indication: PRODUCT USED FOR UNKNOWN INDICATION
     Route: 065
     Dates: start: 20210108, end: 20210112
  10. DEXAMETHASONE. [Suspect]
     Active Substance: DEXAMETHASONE
     Indication: PLASMA CELL MYELOMA
     Route: 065
     Dates: start: 20201229, end: 20201229
  11. NORMAL SALINE [Concomitant]
     Active Substance: SODIUM CHLORIDE
     Indication: NEPHROTIC SYNDROME
     Dosage: 500 MILLILITER
     Route: 065
     Dates: start: 20201230, end: 20210108
  12. LENALIDOMIDE [Suspect]
     Active Substance: LENALIDOMIDE
     Indication: PLASMA CELL MYELOMA
     Route: 048
     Dates: start: 20201222, end: 20201229
  13. CALCIORAL [Concomitant]
     Indication: HYPOCALCAEMIA
     Route: 065
     Dates: start: 20201229, end: 20201231
  14. HUMAN ALBUMIN [Concomitant]
     Active Substance: ALBUMIN HUMAN
     Indication: HYPOALBUMINAEMIA
     Dosage: 20MG/100ML
     Route: 041
     Dates: start: 20210106, end: 20210106
  15. ONE ALPHA [Concomitant]
     Active Substance: ALFACALCIDOL
     Indication: HYPOCALCAEMIA
     Dosage: .25 MICROGRAM
     Route: 065
     Dates: start: 20201231, end: 20210108
  16. LOBIVON [Concomitant]
     Active Substance: NEBIVOLOL HYDROCHLORIDE
     Indication: ATRIAL FIBRILLATION
     Dosage: 1.25 MILLIGRAM
     Route: 065
     Dates: start: 20201231
  17. NORMAL SALINE [Concomitant]
     Active Substance: SODIUM CHLORIDE
     Indication: RENAL IMPAIRMENT
     Dosage: 500 MILLILITER
     Route: 041
     Dates: start: 20210103, end: 20210108
  18. LENALIDOMIDE [Suspect]
     Active Substance: LENALIDOMIDE
     Dosage: 15 MILLIGRAM
     Route: 048
     Dates: start: 20210119
  19. LACTATED RINGERS SOLUTION [Concomitant]
     Active Substance: CALCIUM CHLORIDE\POTASSIUM CHLORIDE\SODIUM CHLORIDE\SODIUM LACTATE
     Indication: NEPHROTIC SYNDROME
     Dosage: 1000 MILLILITER
     Route: 065
     Dates: start: 20201230, end: 20210108

REACTIONS (1)
  - Nephrotic syndrome [Recovered/Resolved]

NARRATIVE: CASE EVENT DATE: 20210103
